FAERS Safety Report 7101276-2 (Version None)
Quarter: 2010Q4

REPORT INFORMATION
  Report Type: 
  Country: None (occurrence: None)
  Receive Date: 20101115
  Receipt Date: 20100105
  Transmission Date: 20110411
  Serious: Yes (Other)
  Sender: FDA-Public Use
  Company Number: US-ASTRAZENECA-2008UW24355

PATIENT
  Age: 614 Month
  Sex: Male

DRUGS (10)
  1. SEROQUEL [Suspect]
     Indication: DEPRESSION
     Route: 048
     Dates: start: 20051128
  2. SEROQUEL [Suspect]
     Indication: SLEEP DISORDER
     Route: 048
     Dates: start: 20051128
  3. SEROQUEL [Suspect]
     Route: 048
     Dates: start: 20051130
  4. SEROQUEL [Suspect]
     Route: 048
     Dates: start: 20051130
  5. ACTOS [Concomitant]
     Dates: start: 20071119
  6. GLUCOPHAGE [Concomitant]
     Dates: start: 20071119
  7. ZOCOR [Concomitant]
     Dates: start: 20071119
  8. DIOVAN [Concomitant]
     Dates: start: 20071119
  9. DIOVAN HCT [Concomitant]
     Dosage: 12.5-80MG
     Route: 048
     Dates: start: 20070202
  10. GEODON [Concomitant]
     Dates: start: 20070411

REACTIONS (4)
  - DELUSIONAL DISORDER, UNSPECIFIED TYPE [None]
  - DIABETES MELLITUS INADEQUATE CONTROL [None]
  - HYPOAESTHESIA [None]
  - NEUROPATHY PERIPHERAL [None]
